FAERS Safety Report 11639272 (Version 1)
Quarter: 2015Q4

REPORT INFORMATION
  Report Type: Spontaneous
  Country: IT (occurrence: IT)
  Receive Date: 20151019
  Receipt Date: 20151019
  Transmission Date: 20160304
  Serious: Yes (Other)
  Sender: FDA-Public Use
  Company Number: IT-ACCORD-034379

PATIENT
  Age: 76 Year
  Sex: Female
  Weight: 52 kg

DRUGS (3)
  1. AVASTIN [Interacting]
     Active Substance: BEVACIZUMAB
     Indication: ADENOCARCINOMA OF COLON
     Dosage: 5 MG/KG DAY 1 FOR 14 DAYS, STRENGTH: 400 MG
     Route: 042
     Dates: start: 20140911, end: 20140911
  2. OXALIPLATIN. [Interacting]
     Active Substance: OXALIPLATIN
     Indication: ADENOCARCINOMA OF COLON
     Dosage: 85 MG/M2 DAY 1 FOR 14 DAYS, FOLFOX
     Route: 042
     Dates: start: 20140819, end: 20140911
  3. FLUOROURACIL. [Suspect]
     Active Substance: FLUOROURACIL
     Indication: ADENOCARCINOMA OF COLON
     Dosage: 400 MG/M2 DAY 1 FOR 14 DAYS, FOLFOX
     Route: 042
     Dates: start: 20140819, end: 20140911

REACTIONS (2)
  - Drug interaction [Unknown]
  - Electrocardiogram ST segment depression [Unknown]

NARRATIVE: CASE EVENT DATE: 20140919
